FAERS Safety Report 22024102 (Version 2)
Quarter: 2023Q1

REPORT INFORMATION
  Report Type: Report from Study
  Country: DE (occurrence: DE)
  Receive Date: 20230223
  Receipt Date: 20230228
  Transmission Date: 20230418
  Serious: Yes (Life-Threatening, Hospitalization, Other)
  Sender: FDA-Public Use
  Company Number: DE-ARGENX-2023-ARGX-DE000558

PATIENT

DRUGS (1)
  1. VYVGART [Suspect]
     Active Substance: EFGARTIGIMOD ALFA-FCAB
     Indication: Myasthenia gravis
     Dosage: 720 MG
     Route: 042
     Dates: start: 20230125

REACTIONS (4)
  - Dyspnoea [Unknown]
  - Malaise [Unknown]
  - Anxiety [Unknown]
  - Dysarthria [Unknown]

NARRATIVE: CASE EVENT DATE: 20230218
